FAERS Safety Report 13871789 (Version 1)
Quarter: 2017Q3

REPORT INFORMATION
  Report Type: Spontaneous
  Country: DE (occurrence: DE)
  Receive Date: 20170816
  Receipt Date: 20170816
  Transmission Date: 20171127
  Serious: Yes (Other)
  Sender: FDA-Public Use
  Company Number: DE-PFIZER INC-2017321119

PATIENT
  Age: 52 Year
  Sex: Female
  Weight: 59 kg

DRUGS (7)
  1. OPIPRAMOL [Concomitant]
     Active Substance: OPIPRAMOL
     Indication: DEPRESSION
     Dosage: 25 - 50 MG DAILY
     Route: 048
     Dates: start: 20170405
  2. TILIDIN [Concomitant]
     Active Substance: NALOXONE HYDROCHLORIDE\TILIDINE HYDROCHLORIDE
     Dosage: 100 MG, DAILY
     Route: 048
     Dates: start: 20170413, end: 20170416
  3. OPIPRAMOL [Concomitant]
     Active Substance: OPIPRAMOL
     Indication: NEURALGIA
  4. IBUPROFEN. [Concomitant]
     Active Substance: IBUPROFEN
     Dosage: 1200 MG, DAILY
     Route: 048
     Dates: start: 201703, end: 201707
  5. LYRICA [Suspect]
     Active Substance: PREGABALIN
     Indication: NEURALGIA
     Dosage: 25 MG/DAILY AND THEN INCREASED TO 75-75-100 MG
     Route: 048
     Dates: start: 20170405
  6. KELTICAN FORTE [Concomitant]
     Dosage: 1 DF, DAILY
     Route: 048
     Dates: start: 20170405
  7. MEDIVITAN INJECTION [Concomitant]
     Dosage: 2-3 X/WEEKLY
     Route: 042

REACTIONS (3)
  - Gingival swelling [Not Recovered/Not Resolved]
  - Gingival recession [Not Recovered/Not Resolved]
  - Gingival bleeding [Unknown]

NARRATIVE: CASE EVENT DATE: 201704
